FAERS Safety Report 6812335-3 (Version None)
Quarter: 2010Q3

REPORT INFORMATION
  Report Type: 
  Country: None (occurrence: None)
  Receive Date: 20100701
  Receipt Date: 20100619
  Transmission Date: 20110219
  Serious: Yes (Hospitalization, Other)
  Sender: FDA-Public Use
  Company Number: PHHY2010BR40506

PATIENT
  Sex: Female

DRUGS (4)
  1. EXFORGE [Suspect]
     Indication: HYPERTENSION
     Dosage: 320/10 MG; HALF TABLET DAILY
  2. EXFORGE [Suspect]
     Dosage: 80/5 MG
     Route: 048
  3. EXFORGE [Suspect]
     Dosage: 160/5 MG
  4. METHYLDOPA [Concomitant]
     Indication: HYPERTENSION
     Dosage: 250 MG (3 TABLETS DAILY)
     Route: 048

REACTIONS (3)
  - BLOOD PRESSURE FLUCTUATION [None]
  - HYPERTENSION [None]
  - WRONG TECHNIQUE IN DRUG USAGE PROCESS [None]
